FAERS Safety Report 5346007-1 (Version None)
Quarter: 2007Q2

REPORT INFORMATION
  Report Type: 
  Country: None (occurrence: None)
  Receive Date: 20070605
  Receipt Date: 20070529
  Transmission Date: 20071010
  Serious: Yes (Hospitalization, Other)
  Sender: FDA-Public Use
  Company Number: FR-ELI_LILLY_AND_COMPANY-FR200705007217

PATIENT
  Age: 57 Year
  Sex: Female
  Weight: 87 kg

DRUGS (11)
  1. ALIMTA [Suspect]
     Indication: LUNG ADENOCARCINOMA METASTATIC
     Dosage: 500 MG/M2, OTHER
     Route: 042
     Dates: start: 20070201, end: 20070222
  2. TARCEVA [Concomitant]
     Indication: LUNG ADENOCARCINOMA METASTATIC
     Dosage: 100 MG, DAILY (1/D)
     Route: 065
     Dates: start: 20060101, end: 20070401
  3. FOLIC ACID [Concomitant]
     Indication: VITAMIN SUPPLEMENTATION
     Dosage: UNK, UNKNOWN
     Route: 065
  4. VITAMIN B-12 [Concomitant]
     Indication: VITAMIN SUPPLEMENTATION
     Dosage: UNK, UNKNOWN
     Route: 066
  5. GRANOCYTE [Concomitant]
     Indication: PROPHYLAXIS
     Dosage: UNK, UNKNOWN
     Route: 065
  6. NEORECORMON [Concomitant]
     Indication: PROPHYLAXIS
     Dosage: UNK, UNKNOWN
     Route: 065
  7. GLUCOPHAGE [Concomitant]
     Dosage: UNK, UNKNOWN
     Route: 048
     Dates: start: 20041101
  8. IMODIUM [Concomitant]
     Dosage: UNK, UNKNOWN
     Route: 048
     Dates: start: 20060101
  9. LYTOS [Concomitant]
     Dosage: UNK, UNKNOWN
     Route: 065
  10. MICARDIS [Concomitant]
     Dosage: UNK, UNKNOWN
     Route: 048
     Dates: start: 20051201
  11. SMECTA                             /00837601/ [Concomitant]
     Dosage: UNK, UNKNOWN
     Route: 065

REACTIONS (7)
  - ASTHENIA [None]
  - CANDIDIASIS [None]
  - HYPERTHERMIA [None]
  - NAUSEA [None]
  - PANCYTOPENIA [None]
  - RENAL FAILURE ACUTE [None]
  - VOMITING [None]
